FAERS Safety Report 23847232 (Version 1)
Quarter: 2024Q2

REPORT INFORMATION
  Report Type: Spontaneous
  Country: CO (occurrence: CO)
  Receive Date: 20240513
  Receipt Date: 20240513
  Transmission Date: 20240715
  Serious: Yes (Other)
  Sender: FDA-Public Use
  Company Number: CO-Techdow-2024Techdow000093

PATIENT
  Age: 11 Year
  Sex: Male

DRUGS (3)
  1. HEPARIN SODIUM [Suspect]
     Active Substance: HEPARIN SODIUM
     Indication: Anticoagulant therapy
     Dosage: SYSTEMIC HEPARINIZATION (UNKNOWN DOSAGE) DURING MECHANICAL VALVULAR REPLACEMENT SURGERY
     Dates: start: 20140528, end: 20140528
  2. HEPARIN SODIUM [Suspect]
     Active Substance: HEPARIN SODIUM
     Indication: Anticoagulant therapy
     Dosage: 12U/KG/HR
     Dates: start: 20220214, end: 20220224
  3. WARFARIN [Concomitant]
     Active Substance: WARFARIN
     Indication: Anticoagulant therapy

REACTIONS (2)
  - Drug reaction with eosinophilia and systemic symptoms [Recovered/Resolved]
  - Drug reaction with eosinophilia and systemic symptoms [Recovered/Resolved]

NARRATIVE: CASE EVENT DATE: 20140624
